FAERS Safety Report 7053583-X (Version None)
Quarter: 2010Q4

REPORT INFORMATION
  Report Type: 
  Country: None (occurrence: None)
  Receive Date: 20101020
  Receipt Date: 20101007
  Transmission Date: 20110411
  Serious: Yes (Hospitalization)
  Sender: FDA-Public Use
  Company Number: SE-ROCHE-731657

PATIENT
  Age: 73 Year
  Sex: Male

DRUGS (14)
  1. VESANOID [Suspect]
     Indication: ACUTE MYELOID LEUKAEMIA
     Dosage: DOSE: 100MGD
     Route: 048
     Dates: start: 20100701, end: 20100731
  2. OXYCONTIN [Concomitant]
  3. DIOVAN [Concomitant]
  4. METFORMIN HCL [Concomitant]
  5. SIMVASTATIN [Concomitant]
  6. FLUKONAZOL [Concomitant]
  7. ACICLOVIR [Concomitant]
  8. BEHEPAN [Concomitant]
  9. FURIX [Concomitant]
  10. ALVEDON [Concomitant]
     Dosage: DRUG: ALVEDON FORTE FILM COATED TABLET
  11. IMDUR [Concomitant]
  12. TAZOCIN [Concomitant]
  13. DEXACORTAL [Concomitant]
     Indication: RETINOIC ACID SYNDROME
     Dosage: DEXOCORTAL TABL 1,5MG
  14. WARFARIN [Concomitant]
     Indication: ATRIAL FIBRILLATION

REACTIONS (2)
  - CEREBROVASCULAR DISORDER [None]
  - SOMNOLENCE [None]
